FAERS Safety Report 4990053-4 (Version None)
Quarter: 2006Q2

REPORT INFORMATION
  Report Type: 
  Country: None (occurrence: None)
  Receive Date: 20060427
  Receipt Date: 20060424
  Transmission Date: 20061013
  Serious: Yes (Life-Threatening, Other)
  Sender: FDA-Public Use
  Company Number: GB-2006-006855

PATIENT
  Age: 49 Year
  Sex: Female
  Weight: 73 kg

DRUGS (4)
  1. MIRENA [Suspect]
     Indication: MENORRHAGIA
     Dosage: 20 UG/DAY, CONT, INTRA-UTERINE
     Route: 015
     Dates: start: 20060303
  2. PROPRANOLOL [Concomitant]
  3. CLARITHROMYCIN [Concomitant]
  4. FLUCONAZOLE [Concomitant]

REACTIONS (1)
  - ANAPHYLACTIC REACTION [None]
